FAERS Safety Report 14814308 (Version 1)
Quarter: 2018Q2

REPORT INFORMATION
  Report Type: Spontaneous
  Country: US (occurrence: US)
  Receive Date: 20180426
  Receipt Date: 20180426
  Transmission Date: 20180711
  Serious: Yes (Other)
  Sender: FDA-Public Use
  Company Number: PHHY2018US066512

PATIENT
  Age: 59 Year
  Sex: Male

DRUGS (6)
  1. CALCIUM GLUCONATE. [Concomitant]
     Active Substance: CALCIUM GLUCONATE
     Indication: HYPERKALAEMIA
     Route: 065
  2. PMS-SODIUM POLYSTERENE SULFONATE [Concomitant]
     Indication: HYPERKALAEMIA
  3. RASBURICASE [Concomitant]
     Active Substance: RASBURICASE
     Indication: HYPERURICAEMIA
     Route: 065
  4. ALLOPURINOL. [Concomitant]
     Active Substance: ALLOPURINOL
     Indication: HYPERURICAEMIA
     Route: 065
  5. PACLITAXEL. [Suspect]
     Active Substance: PACLITAXEL
     Indication: MALIGNANT MELANOMA STAGE IV
     Route: 065
  6. CARBOPLATIN. [Suspect]
     Active Substance: CARBOPLATIN
     Indication: MALIGNANT MELANOMA STAGE III
     Route: 065

REACTIONS (5)
  - Blood creatinine increased [Unknown]
  - Blood phosphorus increased [Unknown]
  - Blood potassium increased [Unknown]
  - Product use in unapproved indication [Unknown]
  - Concomitant disease aggravated [Unknown]
